FAERS Safety Report 13508973 (Version 1)
Quarter: 2017Q2

REPORT INFORMATION
  Report Type: Spontaneous
  Country: IT (occurrence: IT)
  Receive Date: 20170503
  Receipt Date: 20170503
  Transmission Date: 20170830
  Serious: Yes (Death)
  Sender: FDA-Public Use
  Company Number: IT-SUN PHARMACEUTICAL INDUSTRIES LTD-2017RR-139371

PATIENT
  Age: 69 Year
  Sex: Male
  Weight: 60 kg

DRUGS (4)
  1. CARBOPLATIN. [Suspect]
     Active Substance: CARBOPLATIN
     Indication: METASTASES TO PELVIS
     Dosage: 360 MG CYCLICAL
     Route: 041
     Dates: start: 20170308, end: 20170308
  2. ONDANSETRON [Concomitant]
     Active Substance: ONDANSETRON
     Indication: PRODUCT USED FOR UNKNOWN INDICATION
     Dosage: UNK
     Route: 065
  3. SOLDESAM [Concomitant]
     Active Substance: DEXAMETHASONE
     Indication: PRODUCT USED FOR UNKNOWN INDICATION
     Dosage: UNK
     Route: 065
  4. GEMCITABINE [Suspect]
     Active Substance: GEMCITABINE\GEMCITABINE HYDROCHLORIDE
     Indication: METASTASES TO PELVIS
     Dosage: 1600 MG CYCLICAL
     Route: 041
     Dates: start: 20170308, end: 20170315

REACTIONS (3)
  - Neutropenia [Fatal]
  - Thrombocytopenia [Fatal]
  - Septic shock [Fatal]

NARRATIVE: CASE EVENT DATE: 20170322
